FAERS Safety Report 18473611 (Version 1)
Quarter: 2020Q4

REPORT INFORMATION
  Report Type: Spontaneous
  Country: US (occurrence: US)
  Receive Date: 20201104
  Receipt Date: 20201104
  Transmission Date: 20210114
  Serious: No
  Sender: FDA-Public Use
  Company Number: None

PATIENT
  Age: 53 Year
  Sex: Male
  Weight: 104 kg

DRUGS (1)
  1. CEFAZOLIN (CEFAZOLIN NA 1GM/VIL INJ) [Suspect]
     Active Substance: CEFAZOLIN
     Indication: SURGERY
     Dosage: ?          OTHER STRENGTH:1GM/VIL;?
     Route: 042
     Dates: start: 20190911, end: 20190911

REACTIONS (1)
  - Anaphylactic reaction [None]

NARRATIVE: CASE EVENT DATE: 20190911
